FAERS Safety Report 19618497 (Version 2)
Quarter: 2022Q2

REPORT INFORMATION
  Report Type: Spontaneous
  Country: US (occurrence: None)
  Receive Date: 20210727
  Receipt Date: 20220621
  Transmission Date: 20220720
  Serious: No
  Sender: FDA-Public Use
  Company Number: US-ROCHE-2808584

PATIENT
  Age: 58 Year
  Sex: Female
  Weight: 62.652 kg

DRUGS (8)
  1. XELODA [Suspect]
     Active Substance: CAPECITABINE
     Indication: Malignant nipple neoplasm female
     Dosage: TAKES 2-500MG TABLETS TWICE A DAY DAYS 1-5, DAYS 8-12, OFF FOR 9 DAYS, REPEAT CYCLE EVERY 21 DAYS.
     Route: 048
     Dates: start: 202102
  2. XELODA [Suspect]
     Active Substance: CAPECITABINE
     Indication: Breast cancer metastatic
     Route: 048
     Dates: start: 20210111
  3. XELODA [Suspect]
     Active Substance: CAPECITABINE
     Route: 048
     Dates: start: 202102
  4. TUKYSA [Concomitant]
     Active Substance: TUCATINIB
     Indication: Breast cancer metastatic
     Dosage: TAKES 2-150MG TABLETS
     Route: 048
     Dates: start: 20210119
  5. ONDANSETRON [Concomitant]
     Active Substance: ONDANSETRON
     Indication: Nausea
     Dosage: AS NEEDED
     Route: 048
  6. CARVEDILOL [Concomitant]
     Active Substance: CARVEDILOL
     Route: 048
  7. ATORVASTATIN [Concomitant]
     Active Substance: ATORVASTATIN
     Indication: Blood cholesterol increased
     Route: 048
  8. PREGABALIN [Concomitant]
     Active Substance: PREGABALIN
     Indication: Neuralgia
     Route: 048

REACTIONS (5)
  - Palmar-plantar erythrodysaesthesia syndrome [Unknown]
  - Nausea [Unknown]
  - Insomnia [Unknown]
  - Weight decreased [Unknown]
  - Blood pressure decreased [Unknown]

NARRATIVE: CASE EVENT DATE: 20210111
